FAERS Safety Report 8507238-2 (Version None)
Quarter: 2012Q3

REPORT INFORMATION
  Report Type: 
  Country: None (occurrence: None)
  Receive Date: 20120712
  Receipt Date: 20120709
  Transmission Date: 20120928
  Serious: Yes (Other)
  Sender: FDA-Public Use
  Company Number: IE-GILEAD-2012-0056330

PATIENT
  Sex: Male

DRUGS (14)
  1. GLUCOPHAGE [Concomitant]
     Indication: TYPE 2 DIABETES MELLITUS
     Dosage: UNK
  2. ESOMEPRAZOLE [Concomitant]
     Indication: DYSPEPSIA
  3. RISPERDAL [Concomitant]
  4. ALFUZOSIN HYDROCHLORIDE [Concomitant]
     Indication: BENIGN PROSTATIC HYPERPLASIA
  5. FLUTICASONE FUROATE [Concomitant]
     Indication: RHINITIS ALLERGIC
  6. ACETAMINOPHEN [Concomitant]
     Indication: PAIN
  7. ZOLPIDEM TATRATE [Concomitant]
     Indication: INSOMNIA
  8. RANOLAZINE [Suspect]
     Dosage: 375 MG, BID
     Route: 048
  9. ISOSORBIDE DINITRATE [Concomitant]
     Indication: HYPERTENSION
  10. BECLOMETHASONE DIPROPIONATE [Concomitant]
     Indication: ASTHMA
  11. NU-SEALS ASPIRIN [Concomitant]
     Indication: ANTIPLATELET THERAPY
  12. RANOLAZINE [Suspect]
     Indication: ANGINA PECTORIS
     Dosage: 500 MG, BID
     Route: 048
     Dates: start: 20120515
  13. EXPUTEX [Concomitant]
     Indication: COUGH
  14. NEBIVOLOL [Concomitant]
     Indication: HYPERTENSION

REACTIONS (2)
  - DIABETES MELLITUS INADEQUATE CONTROL [None]
  - BLOOD GLUCOSE ABNORMAL [None]
